FAERS Safety Report 6913717-1 (Version None)
Quarter: 2010Q3

REPORT INFORMATION
  Report Type: 
  Country: None (occurrence: None)
  Receive Date: 20100809
  Receipt Date: 20100803
  Transmission Date: 20110219
  Serious: Yes (Hospitalization)
  Sender: FDA-Public Use
  Company Number: TW-ELI_LILLY_AND_COMPANY-TW201005000128

PATIENT
  Sex: Female
  Weight: 61 kg

DRUGS (11)
  1. CHK-1 INHIBITOR I (LY2603618) [Suspect]
     Indication: NON-SMALL CELL LUNG CANCER METASTATIC
     Dosage: 150 MG/M2, UNK
     Route: 042
     Dates: start: 20100427
  2. PEMETREXED [Suspect]
     Indication: NON-SMALL CELL LUNG CANCER METASTATIC
     Dosage: 500 MG/M2, UNK
     Route: 042
     Dates: start: 20100426
  3. FOLIC ACID [Concomitant]
     Indication: PREMEDICATION
     Dates: start: 20100421
  4. VITAMIN B-12 [Concomitant]
     Indication: PREMEDICATION
     Dates: start: 20100421, end: 20100421
  5. CORTICOSTEROID NOS [Concomitant]
     Indication: PREMEDICATION
     Dates: start: 20100425, end: 20100427
  6. CODEINE PHOSPHATE [Concomitant]
     Indication: COUGH
     Dates: start: 20100424
  7. GLIBENCLAMIDE [Concomitant]
     Indication: DIABETES MELLITUS
  8. ATENOLOL [Concomitant]
     Indication: HYPERTENSION
     Dates: start: 20100424
  9. FUROSEMIDE [Concomitant]
     Indication: HYPERTENSION
     Dates: start: 20100425
  10. SPIRONOLACTONE [Concomitant]
     Indication: HYPERTENSION
     Dates: start: 20100424
  11. MAGNESIUM OXIDE [Concomitant]
     Indication: CONSTIPATION
     Dates: start: 20100424

REACTIONS (7)
  - CARDIOMEGALY [None]
  - CULTURE URINE POSITIVE [None]
  - ESCHERICHIA SEPSIS [None]
  - EXOSTOSIS [None]
  - LUNG DISORDER [None]
  - SEPSIS [None]
  - SPINAL OSTEOARTHRITIS [None]
